FAERS Safety Report 7349720-X (Version None)
Quarter: 2011Q1

REPORT INFORMATION
  Report Type: 
  Country: None (occurrence: None)
  Receive Date: 20110314
  Receipt Date: 20100129
  Transmission Date: 20110831
  Serious: No
  Sender: FDA-Public Use
  Company Number: US-BAYER-201012991NA

PATIENT
  Sex: Female
  Weight: 55.909 kg

DRUGS (1)
  1. MIRENA [Suspect]
     Indication: CONTRACEPTION
     Dosage: 20 ?G/D, CONT
     Route: 015
     Dates: start: 20070911

REACTIONS (5)
  - BREAST PAIN [None]
  - FATIGUE [None]
  - AMENORRHOEA [None]
  - HEADACHE [None]
  - SOMNOLENCE [None]
